FAERS Safety Report 5724418-X (Version None)
Quarter: 2008Q2

REPORT INFORMATION
  Report Type: 
  Country: None (occurrence: None)
  Receive Date: 20080430
  Receipt Date: 20080422
  Transmission Date: 20081010
  Serious: Yes (Hospitalization)
  Sender: FDA-Public Use
  Company Number: DE-PFIZER INC-2008037096

PATIENT
  Sex: Male

DRUGS (6)
  1. SU-011,248 [Suspect]
     Indication: METASTATIC RENAL CELL CARCINOMA
     Dosage: DAILY DOSE:25MG
     Route: 048
  2. MARCUMAR [Concomitant]
  3. MORPHINE [Concomitant]
  4. METAMIZOLE [Concomitant]
     Dates: start: 20070101, end: 20071101
  5. OMEPRAZOLE [Concomitant]
  6. IDEOS [Concomitant]
     Dates: start: 20071101, end: 20080101

REACTIONS (3)
  - CONFUSIONAL STATE [None]
  - DYSARTHRIA [None]
  - GAIT DISTURBANCE [None]
